FAERS Safety Report 6199807-2 (Version None)
Quarter: 2009Q2

REPORT INFORMATION
  Report Type: 
  Country: None (occurrence: None)
  Receive Date: 20090522
  Receipt Date: 20090511
  Transmission Date: 20091009
  Serious: Yes (Death, Hospitalization, Other)
  Sender: FDA-Public Use
  Company Number: US-PFIZER INC-2009196701

PATIENT
  Sex: Male
  Weight: 117 kg

DRUGS (12)
  1. BLINDED *PLACEBO [Suspect]
     Dosage: UNK
     Dates: start: 20090115, end: 20090404
  2. BLINDED SILDENAFIL CITRATE [Suspect]
     Dosage: UNK
     Dates: start: 20090115, end: 20090404
  3. LIPITOR [Concomitant]
     Indication: HYPERCHOLESTEROLAEMIA
     Dosage: UNK
     Dates: start: 20090101
  4. OXYGEN [Concomitant]
     Indication: HYPOXIA
     Dosage: UNK
     Dates: start: 20081201
  5. ADVAIR DISKUS 100/50 [Concomitant]
     Indication: COUGH
     Dosage: UNK
     Dates: start: 20080204
  6. ASPIRIN [Concomitant]
     Indication: CORONARY ARTERY DISEASE
     Dosage: UNK
     Dates: start: 20080101
  7. ASTELIN [Concomitant]
     Indication: NASAL CONGESTION
     Dosage: UNK
     Dates: start: 20080929
  8. AZITHROMYCIN [Concomitant]
     Indication: PROPHYLAXIS
     Dosage: UNK
     Dates: start: 20080515
  9. VITAMIN B-12 [Concomitant]
     Indication: ROUTINE HEALTH MAINTENANCE
     Dosage: UNK
     Dates: start: 20010101
  10. VITAMIN B6 [Concomitant]
     Indication: ROUTINE HEALTH MAINTENANCE
     Dosage: UNK
     Dates: start: 20010101
  11. CO-Q-10 [Concomitant]
     Indication: ROUTINE HEALTH MAINTENANCE
     Dosage: UNK
     Dates: start: 20070101
  12. FISH OIL [Concomitant]
     Indication: ROUTINE HEALTH MAINTENANCE
     Dosage: UNK
     Dates: start: 20010101

REACTIONS (2)
  - DYSPNOEA [None]
  - IDIOPATHIC PULMONARY FIBROSIS [None]
